FAERS Safety Report 16599545 (Version 2)
Quarter: 2019Q3

REPORT INFORMATION
  Report Type: Report from Study
  Country: None (occurrence: BE)
  Receive Date: 20190720
  Receipt Date: 20190722
  Transmission Date: 20191004
  Serious: Yes (Death)
  Sender: FDA-Public Use
  Company Number: BE-ABBVIE-19K-013-2860454-00

PATIENT
  Sex: Female

DRUGS (6)
  1. STALEVO 50 [Concomitant]
     Dosage: FORM STRENGTH: 50MG/12.5MG/200MG; RESCUE MEDICATION
  2. LAXOBERON [Concomitant]
     Active Substance: SODIUM PICOSULFATE
     Indication: PRODUCT USED FOR UNKNOWN INDICATION
     Dosage: IF NECESSARY
  3. DUODOPA [Suspect]
     Active Substance: CARBIDOPA\LEVODOPA
     Dosage: DOSES CONTINUOUSLY MONITORED AND ADAPTED
     Route: 050
     Dates: start: 20150814, end: 20190215
  4. DUODOPA [Suspect]
     Active Substance: CARBIDOPA\LEVODOPA
     Dosage: MD=4.5ML, CD=0.8ML/HR DURING 16HRS, ED=1.6ML
     Route: 050
     Dates: start: 20190215
  5. DUODOPA [Suspect]
     Active Substance: CARBIDOPA\LEVODOPA
     Indication: PARKINSON^S DISEASE
     Dosage: MD=5ML, CD=1.4ML/HR DURING 16HRS, ED=1.5ML?STRENGTH: 20MG/ML 5 MG/ML
     Route: 050
     Dates: start: 20150810, end: 20150814
  6. STALEVO 50 [Concomitant]
     Indication: PARKINSON^S DISEASE
     Dosage: FORM STRENGTH: 50MG/12.5MG/200MG
     Route: 048

REACTIONS (1)
  - General physical health deterioration [Fatal]
